FAERS Safety Report 4619105-5 (Version None)
Quarter: 2005Q2

REPORT INFORMATION
  Report Type: 
  Country: None (occurrence: None)
  Receive Date: 20050321
  Receipt Date: 20050105
  Transmission Date: 20051028
  Serious: Yes (Other)
  Sender: FDA-Public Use
  Company Number: 2005-01-0249

PATIENT
  Age: 44 Year
  Sex: Female
  Weight: 78.9259 kg

DRUGS (3)
  1. PEG-INTRON [Suspect]
     Indication: HEPATITIS C
     Dosage: 96 MCG QW SUBCUTANEOUS
     Route: 058
     Dates: start: 20030301, end: 20030801
  2. REBETOL [Suspect]
     Indication: HEPATITIS C
     Dosage: 800 MG QD ORAL
     Route: 048
     Dates: start: 20030301, end: 20030801
  3. VITAMIN B-12 [Concomitant]

REACTIONS (3)
  - ANAEMIA [None]
  - BASEDOW'S DISEASE [None]
  - HYPERTHYROIDISM [None]
